FAERS Safety Report 20938625 (Version 1)
Quarter: 2022Q2

REPORT INFORMATION
  Report Type: Report from Study
  Country: US (occurrence: US)
  Receive Date: 20220609
  Receipt Date: 20220609
  Transmission Date: 20220720
  Serious: Yes (Other)
  Sender: FDA-Public Use
  Company Number: US-KOREA IPSEN Pharma-2022-04515

PATIENT
  Age: 55 Year
  Sex: Male

DRUGS (1)
  1. SOMATULINE DEPOT [Suspect]
     Active Substance: LANREOTIDE ACETATE
     Indication: Carcinoid syndrome
     Dosage: 120 MG/0.5ML EVERY 4 WEEKS (SITE: BUTTOCKS)
     Route: 058
     Dates: start: 2017

REACTIONS (3)
  - Neoplasm progression [Not Recovered/Not Resolved]
  - Hepatic neoplasm [Recovered/Resolved]
  - COVID-19 [Recovered/Resolved]

NARRATIVE: CASE EVENT DATE: 20220101
